FAERS Safety Report 11937518 (Version 1)
Quarter: 2016Q1

REPORT INFORMATION
  Report Type: Spontaneous
  Country: IT (occurrence: IT)
  Receive Date: 20160121
  Receipt Date: 20160121
  Transmission Date: 20160526
  Serious: Yes (Other)
  Sender: FDA-Public Use
  Company Number: IT-ROCHE-1697749

PATIENT
  Age: 84 Year
  Sex: Female
  Weight: 67 kg

DRUGS (1)
  1. AVASTIN [Suspect]
     Active Substance: BEVACIZUMAB
     Indication: MACULOPATHY
     Route: 050
     Dates: start: 20110805, end: 20151014

REACTIONS (2)
  - Senile dementia [Unknown]
  - Off label use [Unknown]

NARRATIVE: CASE EVENT DATE: 20151019
